FAERS Safety Report 16498694 (Version 1)
Quarter: 2019Q2

REPORT INFORMATION
  Report Type: Other
  Country: US (occurrence: US)
  Receive Date: 20190629
  Receipt Date: 20190629
  Transmission Date: 20190711
  Serious: Yes (Other)
  Sender: FDA-Public Use
  Company Number: US-AMAG PHARMACEUTICALS, INC.-AMAG201903307

PATIENT
  Age: 35 Year
  Sex: Female

DRUGS (1)
  1. MAKENA [Suspect]
     Active Substance: HYDROXYPROGESTERONE CAPROATE
     Indication: PREMATURE DELIVERY
     Route: 058
     Dates: end: 20190514

REACTIONS (9)
  - Ear infection [Not Recovered/Not Resolved]
  - Adverse event [Not Recovered/Not Resolved]
  - Abdominal pain upper [Not Recovered/Not Resolved]
  - Yellow skin [Not Recovered/Not Resolved]
  - Blood bilirubin abnormal [Not Recovered/Not Resolved]
  - Pain [Not Recovered/Not Resolved]
  - Pruritus [Not Recovered/Not Resolved]
  - Back pain [Not Recovered/Not Resolved]
  - Peripheral swelling [Not Recovered/Not Resolved]

NARRATIVE: CASE EVENT DATE: 20190228
